FAERS Safety Report 7971972-3 (Version None)
Quarter: 2011Q4

REPORT INFORMATION
  Report Type: 
  Country: None (occurrence: None)
  Receive Date: 20111212
  Receipt Date: 20111201
  Transmission Date: 20120403
  Serious: Yes (Hospitalization)
  Sender: FDA-Public Use
  Company Number: US-ASTRAZENECA-2011SE73129

PATIENT
  Age: 59 Year
  Sex: Female
  Weight: 57.6 kg

DRUGS (2)
  1. STRONG CHEMOTHERAPEUTIC ORAL DRUGS [Concomitant]
     Route: 048
  2. SEROQUEL XR [Suspect]
     Indication: ANXIETY
     Route: 048
     Dates: start: 20090101

REACTIONS (7)
  - RENAL DISORDER [None]
  - SCOTOMA [None]
  - RETINAL INJURY [None]
  - VISUAL IMPAIRMENT [None]
  - PAIN [None]
  - RETINAL SCAR [None]
  - OFF LABEL USE [None]
